FAERS Safety Report 7110970-9 (Version None)
Quarter: 2010Q4

REPORT INFORMATION
  Report Type: 
  Country: None (occurrence: None)
  Receive Date: 20101118
  Receipt Date: 20101108
  Transmission Date: 20110411
  Serious: Yes (Hospitalization)
  Sender: FDA-Public Use
  Company Number: DE-SANOFI-AVENTIS-2010SA014524

PATIENT
  Sex: Female
  Weight: 59 kg

DRUGS (3)
  1. CLEXANE [Suspect]
     Indication: COAGULATION FACTOR MUTATION
     Route: 058
     Dates: start: 20100206, end: 20101101
  2. CLEXANE [Suspect]
     Route: 058
     Dates: start: 20100206, end: 20101101
  3. FEMIBION [Concomitant]
     Route: 048
     Dates: start: 20100206, end: 20101006

REACTIONS (7)
  - ARRESTED LABOUR [None]
  - CAESAREAN SECTION [None]
  - DRUG EXPOSURE DURING PREGNANCY [None]
  - FOETAL MALPRESENTATION [None]
  - GESTATIONAL DIABETES [None]
  - INJECTION SITE HAEMATOMA [None]
  - PRODUCT QUALITY ISSUE [None]
